FAERS Safety Report 12854188 (Version 1)
Quarter: 2016Q4

REPORT INFORMATION
  Report Type: Spontaneous
  Country: US (occurrence: US)
  Receive Date: 20161017
  Receipt Date: 20161017
  Transmission Date: 20170207
  Serious: Yes (Other)
  Sender: FDA-Public Use
  Company Number: US-BIOCOMPATIBLES UK LTD-BTG00766

PATIENT

DRUGS (2)
  1. CROFAB [Suspect]
     Active Substance: CROTALIDAE POLYVALENT IMMUNE FAB (OVINE)
     Indication: SNAKE BITE
     Dosage: 8 VIALS INITIALLY, THE 2 ADDL VIALS
     Route: 042
     Dates: start: 20160701, end: 20160701
  2. CROFAB [Suspect]
     Active Substance: CROTALIDAE POLYVALENT IMMUNE FAB (OVINE)
     Dosage: 3 VIALS TOTAL
     Dates: start: 20160705, end: 20160705

REACTIONS (7)
  - Oedema [Unknown]
  - Erythema [Unknown]
  - Paraesthesia [Unknown]
  - Contusion [Unknown]
  - Platelet count decreased [Recovering/Resolving]
  - Pain [Unknown]
  - Ecchymosis [Unknown]

NARRATIVE: CASE EVENT DATE: 201607
